FAERS Safety Report 14635173 (Version 1)
Quarter: 2018Q1

REPORT INFORMATION
  Report Type: Spontaneous
  Country: US (occurrence: US)
  Receive Date: 20180313
  Receipt Date: 20180313
  Transmission Date: 20180509
  Serious: No
  Sender: FDA-Public Use
  Company Number: None

PATIENT
  Age: 74 Year
  Sex: Female

DRUGS (1)
  1. REPATHA [Suspect]
     Active Substance: EVOLOCUMAB

REACTIONS (4)
  - Blood cholesterol decreased [None]
  - Multiple allergies [None]
  - Upper respiratory tract infection [None]
  - Nasopharyngitis [None]

NARRATIVE: CASE EVENT DATE: 20180313
